FAERS Safety Report 8879384 (Version 1)
Quarter: 2012Q4

REPORT INFORMATION
  Report Type: 
  Country: BE (occurrence: BE)
  Receive Date: 20121031
  Receipt Date: 20121031
  Transmission Date: 20130627
  Serious: Yes (Hospitalization)
  Sender: FDA-Public Use
  Company Number: BE-B.I. PHARMACEUTICALS,INC./RIDGEFIELD-2012-BL-00558BL

PATIENT
  Age: 74 Year
  Sex: Male
  Weight: 73 kg

DRUGS (12)
  1. PRADAXA [Suspect]
     Indication: ATRIAL FIBRILLATION
     Dosage: 220 mg
     Route: 048
     Dates: start: 20120523, end: 20121023
  2. PRADAXA [Suspect]
     Dosage: 300 mg
     Route: 048
     Dates: start: 201201, end: 20120522
  3. ASAFLOW [Concomitant]
     Dosage: 80 mg
     Route: 048
  4. LESCOL [Concomitant]
     Dosage: 40 mg
     Route: 048
  5. PREVALON [Concomitant]
     Route: 048
  6. TRITACE [Concomitant]
     Dosage: 5 mg
     Route: 048
  7. OMEPRAZOLE [Concomitant]
     Dosage: 20 mg
     Route: 048
  8. URGENIN [Concomitant]
     Route: 048
  9. TAMSULOSINE [Concomitant]
     Dosage: 0.4 mg
     Route: 048
  10. BISOPROLOL [Concomitant]
     Dosage: 2.5 mg
     Route: 048
  11. BECONASE [Concomitant]
     Indication: VASOMOTOR RHINITIS
  12. HYTRIN [Concomitant]
     Indication: BENIGN PROSTATIC HYPERPLASIA
     Dates: start: 200009

REACTIONS (3)
  - Pancreatitis necrotising [Recovered/Resolved]
  - Vomiting [Recovered/Resolved]
  - Abdominal pain [Recovered/Resolved]
